FAERS Safety Report 18628465 (Version 2)
Quarter: 2021Q1

REPORT INFORMATION
  Report Type: Spontaneous
  Country: CN (occurrence: CN)
  Receive Date: 20201217
  Receipt Date: 20210324
  Transmission Date: 20210419
  Serious: Yes (Other)
  Sender: FDA-Public Use
  Company Number: CN-ABBVIE-20K-035-3697061-00

PATIENT

DRUGS (5)
  1. IFOSFAMIDE. [Suspect]
     Active Substance: IFOSFAMIDE
     Indication: CENTRAL NERVOUS SYSTEM LYMPHOMA
     Dosage: D2 : 1.5 G/M2
     Route: 065
  2. METHYLPREDNISOLONE. [Suspect]
     Active Substance: METHYLPREDNISOLONE
     Indication: CENTRAL NERVOUS SYSTEM LYMPHOMA
     Dosage: D1?3: 80 MG/D
     Route: 065
  3. LIPOSOMAL DOXORUBICIN HYDROCHLORIDE [Suspect]
     Active Substance: DOXORUBICIN HYDROCHLORIDE
     Indication: CENTRAL NERVOUS SYSTEM LYMPHOMA
     Dosage: D3 : 25 MG/M2
     Route: 065
  4. METHOTREXATE. [Suspect]
     Active Substance: METHOTREXATE
     Indication: CENTRAL NERVOUS SYSTEM LYMPHOMA
     Dosage: D1 : 3.5 G/M2
     Route: 065
  5. IBRUTINIB [Suspect]
     Active Substance: IBRUTINIB
     Indication: CENTRAL NERVOUS SYSTEM LYMPHOMA
     Route: 065

REACTIONS (15)
  - Leukopenia [Unknown]
  - Neutropenia [Unknown]
  - Pneumonia fungal [Recovered/Resolved]
  - Hepatic function abnormal [Unknown]
  - Rash [Unknown]
  - Atrial fibrillation [Recovered/Resolved]
  - Urinary tract infection [Unknown]
  - Product use in unapproved indication [Unknown]
  - Asthenia [Unknown]
  - Vomiting [Unknown]
  - Thrombocytopenia [Unknown]
  - Renal impairment [Unknown]
  - Abdominal distension [Unknown]
  - Nausea [Unknown]
  - Off label use [Unknown]
